FAERS Safety Report 10433720 (Version 2)
Quarter: 2014Q4

REPORT INFORMATION
  Report Type: Spontaneous
  Country: IT (occurrence: IT)
  Receive Date: 20140905
  Receipt Date: 20141107
  Transmission Date: 20150528
  Serious: Yes (Hospitalization)
  Sender: FDA-Public Use
  Company Number: IT-SA-2014SA119903

PATIENT
  Age: 77 Year
  Sex: Male

DRUGS (8)
  1. LASIX [Suspect]
     Active Substance: FUROSEMIDE
     Indication: HYPERTENSION
     Route: 048
     Dates: start: 20120101
  2. LASIX [Suspect]
     Active Substance: FUROSEMIDE
     Indication: HYPERTENSION
     Dosage: DOSE:DOSE REDUCED
     Route: 048
     Dates: end: 20140515
  3. NIFEREX [Concomitant]
     Active Substance: IRON\POLYSACCHARIDES
     Dosage: STRENGTH: 100 MG DOSE:1 UNIT(S)
  4. KANRENOL [Suspect]
     Active Substance: CANRENOATE POTASSIUM
     Indication: HYPERTENSION
     Dosage: DOSE: REDUCED DOSE
     Route: 048
     Dates: end: 20140515
  5. PANTOPRAZOLE [Concomitant]
     Active Substance: PANTOPRAZOLE SODIUM
  6. KANRENOL [Suspect]
     Active Substance: CANRENOATE POTASSIUM
     Indication: HYPERTENSION
     Route: 048
     Dates: start: 20120101
  7. EPOETIN ZETA [Concomitant]
     Active Substance: ERYTHROPOIETIN
  8. LACTULOSE. [Concomitant]
     Active Substance: LACTULOSE
     Dosage: DOSE:3 UNIT(S)

REACTIONS (3)
  - Dehydration [Recovering/Resolving]
  - Blood creatinine increased [Recovering/Resolving]
  - Hyperkalaemia [Recovering/Resolving]

NARRATIVE: CASE EVENT DATE: 20140512
